FAERS Safety Report 11562948 (Version 1)
Quarter: 2015Q3

REPORT INFORMATION
  Report Type: Spontaneous
  Country: US (occurrence: US)
  Receive Date: 20150916
  Receipt Date: 20150916
  Transmission Date: 20151125
  Serious: No
  Sender: FDA-Public Use
  Company Number: US-ELI_LILLY_AND_COMPANY-US200901000761

PATIENT
  Sex: Female

DRUGS (19)
  1. OMEPRAZOLE. [Concomitant]
     Active Substance: OMEPRAZOLE
     Dosage: 20 MG, 2/D
  2. DICLOFENAC [Concomitant]
     Active Substance: DICLOFENAC
     Dosage: 75 MG, 2/D
  3. GABAPENTIN. [Concomitant]
     Active Substance: GABAPENTIN
     Dosage: 400 MG, UNK
  4. VITAMIN D [Concomitant]
     Active Substance: CHOLECALCIFEROL
     Dosage: 2000 IU, DAILY (1/D)
  5. HYDROCHLOROTHIAZIDE. [Concomitant]
     Active Substance: HYDROCHLOROTHIAZIDE
     Dosage: 25 MG, DAILY (1/D)
  6. OXYCONTIN [Concomitant]
     Active Substance: OXYCODONE HYDROCHLORIDE
  7. POTASSIUM [Concomitant]
     Active Substance: POTASSIUM
     Dosage: 10 UNK, DAILY (1/D)
  8. PREMARIN [Concomitant]
     Active Substance: ESTROGENS, CONJUGATED
     Dosage: 125 MG, DAILY (1/D)
  9. ASA [Concomitant]
     Active Substance: ASPIRIN
     Dosage: 81 MG, 3/W
  10. ULTRASE [Concomitant]
     Active Substance: PANCRELIPASE
     Dosage: 2 D/F, 2/D
  11. CALCIUM MAGNESIUM                  /01412301/ [Concomitant]
     Dosage: 1000 MG, 2/D
  12. LIDODERM [Concomitant]
     Active Substance: LIDOCAINE
  13. FORTEO [Suspect]
     Active Substance: TERIPARATIDE
     Indication: OSTEOPOROSIS
     Dosage: 20 UG, DAILY (1/D)
     Dates: start: 20080827
  14. POLYETHYLENE GLYCOL [Concomitant]
     Active Substance: POLYETHYLENE GLYCOLS
     Dosage: 3350 UNK, DAILY (1/D)
  15. BIOMALT MULTIVITAMIN [Concomitant]
     Dosage: 1 D/F, DAILY (1/D)
  16. VITAMIN C [Concomitant]
     Active Substance: ASCORBIC ACID
     Dosage: 2000 UNK, 2/D
  17. IRON [Concomitant]
     Active Substance: IRON
     Dosage: 65 UNK, DAILY (1/D)
  18. SYNTHROID [Concomitant]
     Active Substance: LEVOTHYROXINE SODIUM
     Dosage: 75 UG, DAILY (1/D)
  19. IMIPRAMINE [Concomitant]
     Active Substance: IMIPRAMINE
     Dosage: 25 MG, 2/D

REACTIONS (3)
  - Asthenia [Not Recovered/Not Resolved]
  - Balance disorder [Recovered/Resolved]
  - Scratch [Recovered/Resolved]

NARRATIVE: CASE EVENT DATE: 2008
